FAERS Safety Report 19096424 (Version 1)
Quarter: 2021Q2

REPORT INFORMATION
  Report Type: Report from Study
  Country: BR (occurrence: BR)
  Receive Date: 20210406
  Receipt Date: 20210406
  Transmission Date: 20210717
  Serious: Yes (Other)
  Sender: FDA-Public Use
  Company Number: NVSC2021BR072031

PATIENT
  Age: 70 Year
  Sex: Female

DRUGS (1)
  1. KISQALI [Suspect]
     Active Substance: RIBOCICLIB
     Indication: NEOPLASM MALIGNANT
     Dosage: 2 DF, QD (STARTED BETWEEN JAN 2021 AND FEB 2021)
     Route: 065

REACTIONS (8)
  - Nervousness [Unknown]
  - Gait disturbance [Unknown]
  - Headache [Unknown]
  - Malaise [Unknown]
  - Fatigue [Unknown]
  - Decreased immune responsiveness [Unknown]
  - Crying [Unknown]
  - Asthenia [Unknown]

NARRATIVE: CASE EVENT DATE: 20210225
